FAERS Safety Report 17608951 (Version 2)
Quarter: 2022Q1

REPORT INFORMATION
  Report Type: Spontaneous
  Country: US (occurrence: US)
  Receive Date: 20200401
  Receipt Date: 20220325
  Transmission Date: 20220423
  Serious: Yes (Other)
  Sender: FDA-Public Use
  Company Number: US-SA-2020SA079538

PATIENT
  Age: 14 Year
  Sex: Male
  Weight: 45.35 kg

DRUGS (10)
  1. FABRAZYME [Suspect]
     Active Substance: AGALSIDASE BETA
     Indication: Fabry^s disease
     Dosage: 35 MG, QOW
     Route: 041
     Dates: start: 20190206
  2. FABRAZYME [Suspect]
     Active Substance: AGALSIDASE BETA
     Dosage: 45 MG, QOW
     Route: 042
  3. ACETAMINOPHEN [Concomitant]
     Active Substance: ACETAMINOPHEN
  4. DIPHENHYDRAMINE [Concomitant]
     Active Substance: DIPHENHYDRAMINE
  5. SODIUM CHLORIDE [Concomitant]
     Active Substance: SODIUM CHLORIDE
  6. SODIUM CHLORIDE [Concomitant]
     Active Substance: SODIUM CHLORIDE
  7. STERILE WATER [Concomitant]
     Active Substance: WATER
  8. EPINEPHRINE [Concomitant]
     Active Substance: EPINEPHRINE
  9. FLUCELVAX NOS [Concomitant]
     Active Substance: INFLUENZA A VIRUS A/BRISBANE/10/2010 (H1N1) ANTIGEN (MDCK CELL DERIVED, PROPIOLACTONE INACTIVATED)\I
  10. LIDOCAINE [Concomitant]
     Active Substance: LIDOCAINE

REACTIONS (3)
  - Gastric infection [Unknown]
  - Pyrexia [Unknown]
  - Vomiting [Unknown]
